FAERS Safety Report 9271261 (Version 1)
Quarter: 2013Q2

REPORT INFORMATION
  Report Type: Spontaneous
  Country: US (occurrence: US)
  Receive Date: 20130506
  Receipt Date: 20130506
  Transmission Date: 20140414
  Serious: Yes (Other)
  Sender: FDA-Public Use
  Company Number: US-ELI_LILLY_AND_COMPANY-US201304008954

PATIENT
  Sex: Male

DRUGS (1)
  1. OLANZAPINE [Suspect]
     Indication: DEPRESSION
     Dosage: 10 MG, QD
     Dates: start: 20121101

REACTIONS (10)
  - Cardiac failure [Unknown]
  - Intestinal obstruction [Unknown]
  - Dysphagia [Unknown]
  - Oesophageal disorder [Unknown]
  - Hypertension [Unknown]
  - Weight decreased [Unknown]
  - Faeces hard [Unknown]
  - Blood cholesterol increased [Unknown]
  - Constipation [Unknown]
  - Off label use [Unknown]
